FAERS Safety Report 9754341 (Version 3)
Quarter: 2013Q4

REPORT INFORMATION
  Report Type: Report from Study
  Country: US (occurrence: US)
  Receive Date: 20131213
  Receipt Date: 20131227
  Transmission Date: 20140711
  Serious: Yes (Hospitalization)
  Sender: FDA-Public Use
  Company Number: US-BRISTOL-MYERS SQUIBB COMPANY-19857119

PATIENT
  Age: 70 Year
  Sex: Male

DRUGS (2)
  1. TAXOL [Suspect]
     Indication: NON-SMALL CELL LUNG CANCER
     Route: 042
     Dates: start: 20131112, end: 20131112
  2. CARBOPLATIN [Suspect]
     Indication: NON-SMALL CELL LUNG CANCER
     Route: 042
     Dates: start: 20131112, end: 20131112

REACTIONS (6)
  - Haemoglobin decreased [Recovered/Resolved with Sequelae]
  - Neutropenia [Recovered/Resolved]
  - Platelet count decreased [Recovered/Resolved with Sequelae]
  - Asthenia [Recovered/Resolved with Sequelae]
  - Constipation [Unknown]
  - Obstructive uropathy [Unknown]
